FAERS Safety Report 13095964 (Version 3)
Quarter: 2017Q2

REPORT INFORMATION
  Report Type: Spontaneous
  Country: GB (occurrence: GB)
  Receive Date: 20170109
  Receipt Date: 20170413
  Transmission Date: 20170830
  Serious: Yes (Death, Other)
  Sender: FDA-Public Use
  Company Number: GB-AUROBINDO-AUR-APL-2016-16183

PATIENT
  Age: 98 Year
  Sex: Female

DRUGS (3)
  1. INDAPAMIDE. [Suspect]
     Active Substance: INDAPAMIDE
     Indication: OEDEMA PERIPHERAL
     Route: 048
     Dates: start: 201507, end: 201510
  2. OLANZAPINE. [Suspect]
     Active Substance: OLANZAPINE
     Indication: PARANOIA
     Route: 048
     Dates: start: 201507, end: 201510
  3. MIRTAZAPINE. [Suspect]
     Active Substance: MIRTAZAPINE
     Indication: DEPRESSION
     Route: 048
     Dates: start: 201507, end: 201510

REACTIONS (3)
  - Arrhythmia [Fatal]
  - Electrocardiogram QT prolonged [Not Recovered/Not Resolved]
  - Circulatory collapse [Not Recovered/Not Resolved]

NARRATIVE: CASE EVENT DATE: 20151002
